FAERS Safety Report 7135551-2 (Version None)
Quarter: 2010Q4

REPORT INFORMATION
  Report Type: 
  Country: None (occurrence: None)
  Receive Date: 20101203
  Receipt Date: 20101119
  Transmission Date: 20110411
  Serious: Yes (Other)
  Sender: FDA-Public Use
  Company Number: GB-MYLANLABS-2010S1021429

PATIENT
  Age: 62 Year
  Sex: Male

DRUGS (2)
  1. DICLOFENAC [Suspect]
     Indication: PRODUCT USED FOR UNKNOWN INDICATION
  2. CODEINE W/PARACETAMOL [Suspect]
     Indication: PRODUCT USED FOR UNKNOWN INDICATION

REACTIONS (6)
  - ACQUIRED DIAPHRAGMATIC EVENTRATION [None]
  - ATELECTASIS [None]
  - CREPITATIONS [None]
  - DIAPHRAGMATIC PARALYSIS [None]
  - MALLORY-WEISS SYNDROME [None]
  - NERVE STIMULATION TEST ABNORMAL [None]
